FAERS Safety Report 15136203 (Version 1)
Quarter: 2018Q3

REPORT INFORMATION
  Report Type: Spontaneous
  Country: US (occurrence: US)
  Receive Date: 20180618
  Receipt Date: 20180618
  Transmission Date: 20181010
  Serious: Yes (Death)
  Sender: FDA-Public Use
  Company Number: None

PATIENT
  Age: 60 Year
  Sex: Male
  Weight: 74.2 kg

DRUGS (1)
  1. WARFARIN [Suspect]
     Active Substance: WARFARIN
     Indication: HEART VALVE REPLACEMENT
     Route: 048

REACTIONS (6)
  - Intraventricular haemorrhage [None]
  - Cardiac herniation [None]
  - Subarachnoid haemorrhage [None]
  - Aneurysm [None]
  - Heart valve replacement [None]
  - Seizure [None]

NARRATIVE: CASE EVENT DATE: 20180429
